FAERS Safety Report 9454585 (Version 1)
Quarter: 2013Q3

REPORT INFORMATION
  Report Type: Report from Study
  Country: US (occurrence: US)
  Receive Date: 20130812
  Receipt Date: 20130812
  Transmission Date: 20140515
  Serious: Yes (Hospitalization)
  Sender: FDA-Public Use
  Company Number: US-PURDUE-USA-2013-0105227

PATIENT
  Age: 28 Year
  Sex: Female

DRUGS (2)
  1. OXYCONTIN (NDA 22-272) [Suspect]
     Indication: CROHN^S DISEASE
     Dosage: 20 MG, Q12H
     Route: 048
     Dates: end: 201211
  2. OXYCONTIN (NDA 22-272) [Suspect]
     Indication: PANCREATITIS

REACTIONS (2)
  - Pancreatitis [Unknown]
  - Crohn^s disease [Unknown]
